FAERS Safety Report 8281753 (Version 2)
Quarter: 2012Q4

REPORT INFORMATION
  Report Type: 
  Country: US (occurrence: US)
  Receive Date: 20111209
  Receipt Date: 20121207
  Transmission Date: 20130627
  Serious: No
  Sender: FDA-Public Use
  Company Number: US-GLAXOSMITHKLINE-B0705673A

PATIENT
  Sex: Male
  Weight: 125.5 kg

DRUGS (16)
  1. AVANDAMET [Suspect]
     Indication: DIABETES MELLITUS
     Route: 048
     Dates: end: 2009
  2. AVANDARYL [Suspect]
     Indication: DIABETES MELLITUS
     Route: 048
     Dates: start: 200602, end: 2008
  3. AVANDIA [Suspect]
     Indication: DIABETES MELLITUS
     Dosage: 4MG Per day
     Route: 048
  4. TRICOR [Concomitant]
  5. LOTREL [Concomitant]
  6. LIPITOR [Concomitant]
  7. CLONAZEPAM [Concomitant]
  8. TOPAMAX [Concomitant]
  9. NEURONTIN [Concomitant]
  10. INSULIN [Concomitant]
  11. CYMBALTA [Concomitant]
  12. BYETTA [Concomitant]
  13. MS CONTIN [Concomitant]
  14. METFORMIN [Concomitant]
  15. AMBIEN [Concomitant]
  16. ECOTRIN [Concomitant]

REACTIONS (1)
  - Cardiovascular disorder [Unknown]
